FAERS Safety Report 10302021 (Version 2)
Quarter: 2014Q3

REPORT INFORMATION
  Report Type: Spontaneous
  Country: GB (occurrence: None)
  Receive Date: 20140709
  Receipt Date: 20140714
  Transmission Date: 20150326
  Serious: Yes (Death, Hospitalization, Other)
  Sender: FDA-Public Use
  Company Number: AUR-APL-2014-07187

PATIENT
  Age: 88 Year
  Sex: Male

DRUGS (2)
  1. MEROPENEM (MEROPENEM) [Suspect]
     Active Substance: MEROPENEM
     Indication: OSTEOMYELITIS
     Route: 042
  2. CIPROFLOXACIN. [Suspect]
     Active Substance: CIPROFLOXACIN
     Indication: OSTEOMYELITIS

REACTIONS (3)
  - Refusal of treatment by patient [None]
  - Treatment failure [None]
  - Intervertebral discitis [None]
